FAERS Safety Report 16034060 (Version 1)
Quarter: 2019Q1

REPORT INFORMATION
  Report Type: Spontaneous
  Country: US (occurrence: US)
  Receive Date: 20190205
  Receipt Date: 20190205
  Transmission Date: 20190418
  Serious: No
  Sender: FDA-Public Use
  Company Number: None

PATIENT
  Age: 86 Year
  Sex: Male

DRUGS (1)
  1. LIDOCAINE 5% PATCH [Suspect]
     Active Substance: LIDOCAINE
     Indication: NEURALGIA
     Route: 061
     Dates: start: 20190101, end: 20190101

REACTIONS (2)
  - Dermatitis allergic [None]
  - Dermatitis contact [None]

NARRATIVE: CASE EVENT DATE: 20190104
